FAERS Safety Report 8477430-4 (Version None)
Quarter: 2012Q2

REPORT INFORMATION
  Report Type: 
  Country: None (occurrence: None)
  Receive Date: 20120629
  Receipt Date: 20120625
  Transmission Date: 20120825
  Serious: Yes (Hospitalization, Other)
  Sender: FDA-Public Use
  Company Number: PHHY2012CA053002

PATIENT
  Sex: Female

DRUGS (14)
  1. CALCIUM [Concomitant]
  2. DOCUSATE [Concomitant]
  3. ZOLEDRONOC ACID [Suspect]
     Indication: OSTEOPOROSIS
     Dosage: UNK UKN, UNK
     Route: 042
     Dates: start: 20100702
  4. MULTI-VITAMINS [Concomitant]
  5. ZOLEDRONOC ACID [Suspect]
     Dosage: UNK UKN, UNK
     Route: 042
     Dates: start: 20110708
  6. METOPROLOL SUCCINATE [Concomitant]
  7. HYDROCHLOROTHIAZIDE [Concomitant]
  8. RITUXIMAB [Concomitant]
  9. VITAMIN D [Concomitant]
  10. METHOTREXATE [Concomitant]
  11. FOLIC ACID [Concomitant]
  12. NORTRIPTYLINE HYDROCHLORIDE [Concomitant]
  13. SYNTHROID [Concomitant]
  14. CANDESARTAN [Concomitant]

REACTIONS (3)
  - AMNESIA [None]
  - FIBULA FRACTURE [None]
  - FALL [None]
